FAERS Safety Report 21948311 (Version 1)
Quarter: 2023Q1

REPORT INFORMATION
  Report Type: Spontaneous
  Country: US (occurrence: US)
  Receive Date: 20230203
  Receipt Date: 20230203
  Transmission Date: 20230417
  Serious: No
  Sender: FDA-Public Use
  Company Number: US-LEO Pharma-348831

PATIENT
  Sex: Male

DRUGS (1)
  1. ADBRY [Suspect]
     Active Substance: TRALOKINUMAB-LDRM
     Indication: Product used for unknown indication
     Dosage: 300 MG SUBCUTANEOUSLY EVERY TWO WEEKS
     Route: 058
     Dates: start: 202301

REACTIONS (2)
  - Incorrect dose administered [Unknown]
  - Injection site mass [Recovered/Resolved]
